FAERS Safety Report 20317416 (Version 4)
Quarter: 2022Q2

REPORT INFORMATION
  Report Type: Spontaneous
  Country: US (occurrence: US)
  Receive Date: 20220110
  Receipt Date: 20220616
  Transmission Date: 20220721
  Serious: Yes (Other)
  Sender: FDA-Public Use
  Company Number: US-SA-SAC20220107000993

PATIENT
  Sex: Male

DRUGS (23)
  1. DUPIXENT [Suspect]
     Active Substance: DUPILUMAB
     Indication: Dermatitis atopic
     Dosage: 300 MG, QOW
     Route: 058
     Dates: start: 2020
  2. DUPIXENT [Suspect]
     Active Substance: DUPILUMAB
     Indication: Illness
  3. LACTULOSE [Suspect]
     Active Substance: LACTULOSE
  4. PREDNISONE [Concomitant]
     Active Substance: PREDNISONE
     Dosage: UNK
  5. OMEPRAZOLE [Concomitant]
     Active Substance: OMEPRAZOLE
     Dosage: UNK
  6. ACETAMINOPHEN\HYDROCODONE [Concomitant]
     Active Substance: ACETAMINOPHEN\HYDROCODONE
     Dosage: UNK
  7. ALBUTEROL SULFATE [Concomitant]
     Active Substance: ALBUTEROL SULFATE
     Dosage: UNK
  8. CLOBETASOL [Concomitant]
     Active Substance: CLOBETASOL
     Dosage: UNK
  9. NEOMYCIN;POLYMYXIN [Concomitant]
     Dosage: UNK
  10. SINGULAIR [Concomitant]
     Active Substance: MONTELUKAST SODIUM
     Dosage: UNK
  11. PLAQUENIL [Concomitant]
     Active Substance: HYDROXYCHLOROQUINE SULFATE
     Dosage: UNK
  12. AMITIZA [Concomitant]
     Active Substance: LUBIPROSTONE
     Dosage: UNK
  13. METOPROLOL SUCCINATE [Concomitant]
     Active Substance: METOPROLOL SUCCINATE
     Dosage: UNK
  14. DOXYCYCLINE HYCLATE [Concomitant]
     Active Substance: DOXYCYCLINE HYCLATE
     Dosage: UNK
  15. ONFI [Concomitant]
     Active Substance: CLOBAZAM
     Dosage: UNK
  16. GABITRIL [Concomitant]
     Active Substance: TIAGABINE HYDROCHLORIDE
     Dosage: UNK
  17. VIMPAT [Concomitant]
     Active Substance: LACOSAMIDE
     Dosage: 12 MG
  18. CUREL ADVANCED CERAMIDE THERAPY [Concomitant]
     Active Substance: PETROLATUM
     Dosage: UNK
  19. COPPERTONE [OXYBENZONE;PADIMATE] [Concomitant]
     Dosage: UNK
  20. ACETAMINOPHEN\HYDROCODONE [Concomitant]
     Active Substance: ACETAMINOPHEN\HYDROCODONE
  21. LEVOFLOXACIN [Concomitant]
     Active Substance: LEVOFLOXACIN
  22. OPZELURA [Concomitant]
     Active Substance: RUXOLITINIB PHOSPHATE
  23. ARTIFICIAL TEARS [HYPROMELLOSE] [Concomitant]

REACTIONS (39)
  - Cutaneous lupus erythematosus [Unknown]
  - Cataract [Unknown]
  - Systemic lupus erythematosus [Unknown]
  - Gingival swelling [Unknown]
  - Throat irritation [Unknown]
  - Cough [Unknown]
  - Peripheral swelling [Unknown]
  - Feeling of body temperature change [Unknown]
  - Hypophagia [Unknown]
  - Stress [Unknown]
  - Skin wrinkling [Unknown]
  - Skin tightness [Unknown]
  - Ocular discomfort [Unknown]
  - Dermatitis [Unknown]
  - Arthritis [Unknown]
  - Pain [Unknown]
  - Otorrhoea [Unknown]
  - Nausea [Recovered/Resolved]
  - Myopia [Unknown]
  - Hypermetropia [Unknown]
  - Localised oedema [Unknown]
  - Headache [Unknown]
  - Abdominal pain upper [Unknown]
  - Skin tightness [Unknown]
  - Foreign body in eye [Unknown]
  - Muscle tightness [Unknown]
  - Myalgia [Unknown]
  - Pain in extremity [Unknown]
  - Personality change [Unknown]
  - Eye disorder [Unknown]
  - Eye irritation [Unknown]
  - Pruritus [Unknown]
  - Erythema [Unknown]
  - Dry eye [Unknown]
  - Eye irritation [Unknown]
  - Unevaluable event [Unknown]
  - Dry eye [Unknown]
  - Drug ineffective [Unknown]
  - Product use in unapproved indication [Unknown]

NARRATIVE: CASE EVENT DATE: 20200101
